FAERS Safety Report 22105690 (Version 1)
Quarter: 2023Q1

REPORT INFORMATION
  Report Type: Spontaneous
  Country: US (occurrence: US)
  Receive Date: 20230317
  Receipt Date: 20230317
  Transmission Date: 20230418
  Serious: No
  Sender: FDA-Public Use
  Company Number: US-BRISTOL-MYERS SQUIBB COMPANY-2023-039074

PATIENT
  Age: 57 Year
  Sex: Female
  Weight: 49 kg

DRUGS (2)
  1. SOTYKTU [Suspect]
     Active Substance: DEUCRAVACITINIB
     Indication: Psoriasis
     Dosage: DOSE : 6MG;     FREQ : ONCE A DAY
     Route: 048
     Dates: start: 20230217
  2. XANAX [Concomitant]
     Active Substance: ALPRAZOLAM
     Indication: Product used for unknown indication
     Dosage: AS NEEDED ?

REACTIONS (5)
  - Scratch [Unknown]
  - Skin disorder [Unknown]
  - Acne [Unknown]
  - Headache [Unknown]
  - Pruritus [Unknown]
